FAERS Safety Report 20080070 (Version 7)
Quarter: 2023Q2

REPORT INFORMATION
  Report Type: Report from Study
  Country: FR (occurrence: FR)
  Receive Date: 20211117
  Receipt Date: 20230407
  Transmission Date: 20230721
  Serious: Yes (Hospitalization, Other)
  Sender: FDA-Public Use
  Company Number: FR-ROCHE-2874545

PATIENT
  Age: 61 Year
  Sex: Male
  Weight: 68 kg

DRUGS (18)
  1. CARBOPLATIN [Suspect]
     Active Substance: CARBOPLATIN
     Indication: Non-small cell lung cancer metastatic
     Dosage: UNK
     Route: 065
     Dates: start: 20191118, end: 20200224
  2. CARBOPLATIN [Suspect]
     Active Substance: CARBOPLATIN
     Indication: Non-small cell lung cancer
  3. PACLITAXEL [Suspect]
     Active Substance: PACLITAXEL
     Indication: Non-small cell lung cancer metastatic
     Dosage: UNK
     Route: 065
     Dates: start: 20191118, end: 20200224
  4. PACLITAXEL [Suspect]
     Active Substance: PACLITAXEL
     Indication: Non-small cell lung cancer
  5. ATEZOLIZUMAB [Suspect]
     Active Substance: ATEZOLIZUMAB
     Indication: Non-small cell lung cancer metastatic
     Dosage: MOST RECENT DOSE PRIOR TO AE/SAE: 28/DEC/2019
     Route: 042
     Dates: start: 20190715
  6. ATEZOLIZUMAB [Suspect]
     Active Substance: ATEZOLIZUMAB
     Indication: Non-small cell lung cancer
  7. PEMETREXED [Concomitant]
     Active Substance: PEMETREXED
     Dosage: UNK
     Route: 065
  8. SMECTA [Concomitant]
     Active Substance: MONTMORILLONITE
     Dosage: UNK UNK, TID (0.33 DAY)
     Route: 065
     Dates: start: 20191228, end: 20191230
  9. GEMCITABINE [Concomitant]
     Active Substance: GEMCITABINE
     Dosage: UNK
     Route: 065
  10. NIVOLUMAB [Concomitant]
     Active Substance: NIVOLUMAB
     Dosage: UNK
     Route: 065
  11. PANTOPRAZOLE [Concomitant]
     Active Substance: PANTOPRAZOLE
     Dosage: UNK
     Route: 065
     Dates: start: 20191229
  12. PRIMPERAN [Concomitant]
     Active Substance: METOCLOPRAMIDE HYDROCHLORIDE
     Dosage: UNK UNK, QD
     Route: 065
     Dates: start: 20191230, end: 20191231
  13. FOLIC ACID [Concomitant]
     Active Substance: FOLIC ACID
     Dosage: UNK UNK, BID (0.5 DAY)
     Route: 065
     Dates: start: 20191230, end: 20191231
  14. CISPLATIN [Concomitant]
     Active Substance: CISPLATIN
     Dosage: UNK
     Route: 065
  15. RACECADOTRIL [Concomitant]
     Active Substance: RACECADOTRIL
     Dosage: UNK UNK, BID (0.5 DAY)
     Route: 065
     Dates: start: 20191230, end: 20191231
  16. DAFALGAN [Concomitant]
     Active Substance: ACETAMINOPHEN
     Dosage: UNK
     Route: 065
     Dates: start: 20191229
  17. ERYTHROPOIETIN [Concomitant]
     Active Substance: ERYTHROPOIETIN
     Dosage: UNK UNK, QD
     Route: 065
     Dates: start: 20200217
  18. OXAZEPAM [Concomitant]
     Active Substance: OXAZEPAM
     Dosage: UNK, BID (0.5 DAY)
     Route: 065
     Dates: start: 20191228, end: 20191231

REACTIONS (7)
  - White blood cell count decreased [Recovered/Resolved]
  - Bone marrow failure [Not Recovered/Not Resolved]
  - Anaemia [Recovered/Resolved]
  - Oedema peripheral [Recovering/Resolving]
  - Vomiting [Not Recovered/Not Resolved]
  - Paraesthesia [Not Recovered/Not Resolved]
  - Diarrhoea [Not Recovered/Not Resolved]

NARRATIVE: CASE EVENT DATE: 20190916
